FAERS Safety Report 5979920-2 (Version None)
Quarter: 2008Q4

REPORT INFORMATION
  Report Type: 
  Country: None (occurrence: None)
  Receive Date: 20081205
  Receipt Date: 20081125
  Transmission Date: 20090506
  Serious: Yes (Hospitalization, Other)
  Sender: FDA-Public Use
  Company Number: US-PURDUE-USA_2008_0036080

PATIENT
  Sex: Male

DRUGS (2)
  1. DILAUDID [Suspect]
     Indication: CANCER PAIN
     Dosage: UNK, SEE TEXT
     Route: 048
  2. OXYCONTIN [Suspect]
     Indication: CANCER PAIN
     Dosage: 60 MG, BID
     Route: 048

REACTIONS (3)
  - FALL [None]
  - HAND FRACTURE [None]
  - PATHOLOGICAL FRACTURE [None]
